FAERS Safety Report 4318946-1 (Version None)
Quarter: 2004Q1

REPORT INFORMATION
  Report Type: 
  Country: None (occurrence: None)
  Receive Date: 20040318
  Receipt Date: 20040308
  Transmission Date: 20041129
  Serious: Yes (Death, Hospitalization)
  Sender: FDA-Public Use
  Company Number: US-BRISTOL-MYERS SQUIBB COMPANY-12526893

PATIENT
  Age: 58 Year
  Sex: Male

DRUGS (4)
  1. WARFARIN SODIUM [Suspect]
     Indication: DEEP VEIN THROMBOSIS
     Dosage: STARTED ON DAY 9 POSTOPERATIVELY
  2. WARFARIN SODIUM [Suspect]
     Indication: PULMONARY EMBOLISM
     Dosage: STARTED ON DAY 9 POSTOPERATIVELY
  3. HEPARIN [Concomitant]
     Indication: DEEP VEIN THROMBOSIS
     Route: 042
  4. HEPARIN [Concomitant]
     Indication: PULMONARY EMBOLISM
     Route: 042

REACTIONS (2)
  - SEPSIS [None]
  - SKIN NECROSIS [None]
